FAERS Safety Report 8105932-9 (Version None)
Quarter: 2012Q1

REPORT INFORMATION
  Report Type: 
  Country: None (occurrence: None)
  Receive Date: 20120202
  Receipt Date: 20120124
  Transmission Date: 20120608
  Serious: No
  Sender: FDA-Public Use
  Company Number: US-BIOGENIDEC-2012BI002935

PATIENT
  Sex: Female

DRUGS (2)
  1. TYSABRI [Suspect]
     Indication: MULTIPLE SCLEROSIS
     Route: 042
     Dates: start: 20071114
  2. AVONEX [Concomitant]
     Indication: MULTIPLE SCLEROSIS
     Route: 030

REACTIONS (6)
  - NASOPHARYNGITIS [None]
  - PAIN IN EXTREMITY [None]
  - SENSORY DISTURBANCE [None]
  - COGNITIVE DISORDER [None]
  - GAIT DISTURBANCE [None]
  - ABNORMAL BEHAVIOUR [None]
